FAERS Safety Report 12240065 (Version 2)
Quarter: 2016Q2

REPORT INFORMATION
  Report Type: Report from Study
  Country: US (occurrence: US)
  Receive Date: 20160405
  Receipt Date: 20160406
  Transmission Date: 20160815
  Serious: Yes (Hospitalization, Other)
  Sender: FDA-Public Use
  Company Number: US-ABBVIE-16K-163-1593356-00

PATIENT
  Age: 50 Year
  Sex: Female

DRUGS (3)
  1. HUMIRA [Suspect]
     Active Substance: ADALIMUMAB
     Indication: RHEUMATOID ARTHRITIS
     Route: 058
     Dates: start: 2014
  2. HUMIRA [Suspect]
     Active Substance: ADALIMUMAB
     Route: 058
     Dates: start: 201503, end: 201511
  3. HUMIRA [Suspect]
     Active Substance: ADALIMUMAB
     Route: 058
     Dates: start: 20160217

REACTIONS (15)
  - Pain in extremity [Unknown]
  - Mobility decreased [Unknown]
  - Arthralgia [Unknown]
  - Musculoskeletal stiffness [Unknown]
  - Pain [Unknown]
  - Post procedural complication [Unknown]
  - Hysterectomy [Unknown]
  - Activities of daily living impaired [Unknown]
  - Fatigue [Unknown]
  - Depressed mood [Unknown]
  - Asthenia [Unknown]
  - Back pain [Unknown]
  - Post procedural complication [Unknown]
  - Pharyngeal operation [Unknown]
  - Headache [Unknown]

NARRATIVE: CASE EVENT DATE: 201410
